FAERS Safety Report 10681818 (Version 1)
Quarter: 2014Q4

REPORT INFORMATION
  Report Type: Spontaneous
  Country: GB (occurrence: GB)
  Receive Date: 20141230
  Receipt Date: 20141230
  Transmission Date: 20150529
  Serious: Yes (Other)
  Sender: FDA-Public Use
  Company Number: GB-DRREDDYS-GER/UKI/14/0045184

PATIENT
  Age: 64 Year
  Sex: Male

DRUGS (9)
  1. PERINDOPRIL [Concomitant]
     Active Substance: PERINDOPRIL
     Indication: PRODUCT USED FOR UNKNOWN INDICATION
  2. ASPIRIN. [Concomitant]
     Active Substance: ASPIRIN
     Indication: PRODUCT USED FOR UNKNOWN INDICATION
  3. SAW PALMETTO [Concomitant]
     Active Substance: SAW PALMETTO
     Indication: PRODUCT USED FOR UNKNOWN INDICATION
  4. VITAMINS NOS [Concomitant]
     Active Substance: VITAMINS
     Indication: PRODUCT USED FOR UNKNOWN INDICATION
  5. ATORVASTATIN [Suspect]
     Active Substance: ATORVASTATIN
     Indication: MYOCARDIAL INFARCTION
     Route: 048
     Dates: start: 20140814, end: 20141121
  6. COENZYME Q10 [Concomitant]
     Active Substance: UBIDECARENONE
     Indication: PRODUCT USED FOR UNKNOWN INDICATION
  7. ATORVASTATIN [Suspect]
     Active Substance: ATORVASTATIN
     Route: 048
     Dates: start: 20140331, end: 20140813
  8. BISOPROLOL FUMARATE. [Concomitant]
     Active Substance: BISOPROLOL FUMARATE
     Indication: PRODUCT USED FOR UNKNOWN INDICATION
  9. SIMVASTATIN. [Concomitant]
     Active Substance: SIMVASTATIN
     Dates: end: 2013

REACTIONS (5)
  - Muscle spasms [Recovered/Resolved]
  - Rhinitis [Recovering/Resolving]
  - Myalgia [Recovering/Resolving]
  - Arthralgia [Recovering/Resolving]
  - Muscle disorder [Recovered/Resolved]
